FAERS Safety Report 4451010-X (Version None)
Quarter: 2004Q3

REPORT INFORMATION
  Report Type: 
  Country: None (occurrence: None)
  Receive Date: 20040916
  Receipt Date: 20040617
  Transmission Date: 20050211
  Serious: No
  Sender: FDA-Public Use
  Company Number: US-BRISTOL-MYERS SQUIBB COMPANY-12618484

PATIENT
  Age: 42 Year
  Sex: Female
  Weight: 63 kg

DRUGS (2)
  1. STADOL [Suspect]
     Indication: MIGRAINE
     Route: 042
     Dates: start: 20040516, end: 20040516
  2. METHADONE HCL [Concomitant]
     Indication: MULTIPLE SCLEROSIS

REACTIONS (3)
  - AGITATION [None]
  - ANXIETY [None]
  - DRUG SCREEN FALSE POSITIVE [None]
